FAERS Safety Report 10236124 (Version 1)
Quarter: 2014Q2

REPORT INFORMATION
  Report Type: Spontaneous
  Country: JP (occurrence: JP)
  Receive Date: 20140613
  Receipt Date: 20140613
  Transmission Date: 20141212
  Serious: Yes (Life-Threatening, Hospitalization, Other)
  Sender: FDA-Public Use
  Company Number: JP-SA-2014SA076405

PATIENT
  Age: 50 Year
  Sex: Male

DRUGS (6)
  1. ELPLAT [Suspect]
     Indication: PANCREATIC CARCINOMA
     Route: 041
     Dates: start: 20140521, end: 20140521
  2. TOPOTECIN [Suspect]
     Indication: PANCREATIC CARCINOMA
     Route: 041
     Dates: start: 20140521, end: 20140521
  3. FLUOROURACIL [Suspect]
     Indication: PANCREATIC CARCINOMA
     Route: 040
     Dates: start: 20140521, end: 20140521
  4. FLUOROURACIL [Suspect]
     Indication: PANCREATIC CARCINOMA
     Route: 041
     Dates: start: 20140521, end: 20140521
  5. LEVOFOLINATE [Concomitant]
     Route: 042
     Dates: start: 20140521, end: 20140521
  6. BUSCOPAN [Concomitant]
     Dates: start: 20140521, end: 20140521

REACTIONS (3)
  - Cholinergic syndrome [Recovered/Resolved]
  - Febrile neutropenia [Recovered/Resolved]
  - Diarrhoea [Recovered/Resolved]
